FAERS Safety Report 7595888-X (Version None)
Quarter: 2011Q3

REPORT INFORMATION
  Report Type: 
  Country: None (occurrence: None)
  Receive Date: 20110707
  Receipt Date: 20110628
  Transmission Date: 20111222
  Serious: Yes (Hospitalization, Other)
  Sender: FDA-Public Use
  Company Number: PHHY2011AT57461

PATIENT
  Age: 27 Month
  Sex: Male
  Weight: 14 kg

DRUGS (1)
  1. DOXAZOSIN MESYLATE [Suspect]
     Dosage: 2 MG, UNK
     Route: 048
     Dates: start: 20110310, end: 20110310

REACTIONS (3)
  - ACCIDENTAL EXPOSURE [None]
  - FATIGUE [None]
  - SINUS TACHYCARDIA [None]
